FAERS Safety Report 5106064-4 (Version None)
Quarter: 2006Q3

REPORT INFORMATION
  Report Type: 
  Country: None (occurrence: None)
  Receive Date: 20060912
  Receipt Date: 20060829
  Transmission Date: 20061208
  Serious: Yes (Other)
  Sender: FDA-Public Use
  Company Number: 2006107327

PATIENT
  Age: 55 Year
  Sex: Female

DRUGS (8)
  1. CELEBREX [Suspect]
     Indication: ARTHRALGIA
     Dosage: (200 MG,)
     Dates: start: 20060824
  2. IBUPROFEN [Suspect]
     Indication: ARTHRALGIA
  3. SPIRONOLACTONE [Suspect]
     Indication: DRUG USE FOR UNKNOWN INDICATION
     Dosage: (25 MG,)
  4. DEXAMFETAMINE SULFATE (DEXAMFETAMINE SULFATE) [Suspect]
     Indication: NARCOLEPSY
     Dosage: 20 MG (10 MG, 2 IN 1 D),
  5. MESTINON [Suspect]
     Indication: DRUG USE FOR UNKNOWN INDICATION
     Dosage: (100 MG,)
  6. THYROID TAB [Suspect]
     Indication: DRUG USE FOR UNKNOWN INDICATION
     Dosage: (150 MG,)
  7. MAXAIR [Concomitant]
  8. ASPIRIN [Concomitant]

REACTIONS (7)
  - ALCOHOL INTERACTION [None]
  - APHASIA [None]
  - DRUG EFFECT DECREASED [None]
  - DRUG INTERACTION [None]
  - DYSARTHRIA [None]
  - FEELING ABNORMAL [None]
  - THOUGHT BLOCKING [None]
